FAERS Safety Report 7057920-1 (Version None)
Quarter: 2010Q4

REPORT INFORMATION
  Report Type: 
  Country: None (occurrence: None)
  Receive Date: 20101022
  Receipt Date: 20100930
  Transmission Date: 20110411
  Serious: Yes (Hospitalization)
  Sender: FDA-Public Use
  Company Number: US-BAYER-201036855NA

PATIENT
  Age: 31 Year
  Sex: Female
  Weight: 93 kg

DRUGS (6)
  1. YASMIN [Suspect]
     Indication: ORAL CONTRACEPTION
     Route: 048
     Dates: start: 20040801, end: 20080701
  2. IBUPROFEN [Concomitant]
     Dates: start: 20080301
  3. FLUOXETINE [Concomitant]
     Indication: DEPRESSION
     Dates: start: 20080701
  4. BUPROPION [Concomitant]
     Indication: DEPRESSION
     Dates: start: 20080701
  5. COUMADIN [Concomitant]
     Indication: PULMONARY EMBOLISM
  6. LOVENOX [Concomitant]
     Indication: PULMONARY EMBOLISM

REACTIONS (3)
  - CHEST PAIN [None]
  - DYSPNOEA [None]
  - PULMONARY EMBOLISM [None]
